FAERS Safety Report 21785340 (Version 1)
Quarter: 2022Q4

REPORT INFORMATION
  Report Type: Spontaneous
  Country: IN (occurrence: IN)
  Receive Date: 20221227
  Receipt Date: 20221227
  Transmission Date: 20230112
  Serious: Yes (Other)
  Sender: FDA-Public Use
  Company Number: IN-PFIZER INC-PV202200128892

PATIENT
  Age: 74 Year
  Sex: Female

DRUGS (9)
  1. DACOMITINIB [Suspect]
     Active Substance: DACOMITINIB
     Dosage: 30 MG, 1X/DAY
     Route: 048
     Dates: start: 20221128
  2. HYDROCORTISONE [Concomitant]
     Active Substance: HYDROCORTISONE
     Indication: Rash
     Dosage: UNK
  3. DOXYCYCLINE [Concomitant]
     Active Substance: DOXYCYCLINE
     Dosage: 100 MG ONCE DAILY
  4. LOPERAMIDE [Concomitant]
     Active Substance: LOPERAMIDE
     Indication: Diarrhoea
     Dosage: 2 MG AS NEEDED
  5. MEGEETRON [Concomitant]
     Dosage: 160 MG TWICE DAILY
  6. MINERALS\VITAMINS [Concomitant]
     Active Substance: MINERALS\VITAMINS
     Dosage: ONCE DAILY
  7. CREMAFFIN PLUS [Concomitant]
     Indication: Constipation
     Dosage: 15 ML AS NEEDED
  8. TAPENTADOL [Concomitant]
     Active Substance: TAPENTADOL
     Dosage: 100 MG, 3X/DAY
  9. PYRIGESIC [Concomitant]
     Dosage: 1000 MG, 3X/DAY

REACTIONS (4)
  - Heart rate increased [Unknown]
  - Gamma-glutamyltransferase increased [Unknown]
  - Blood pressure increased [Unknown]
  - Creatinine renal clearance decreased [Unknown]
